FAERS Safety Report 8785483 (Version 2)
Quarter: 2013Q1

REPORT INFORMATION
  Report Type: Spontaneous
  Country: JP (occurrence: JP)
  Receive Date: 20120914
  Receipt Date: 20130211
  Transmission Date: 20140127
  Serious: Yes (Disabling)
  Sender: FDA-Public Use
  Company Number: JP-AMGEN-JPNSP2012054684

PATIENT
  Age: 73 Year
  Sex: Female
  Weight: 60 kg

DRUGS (9)
  1. VECTIBIX [Suspect]
     Indication: COLORECTAL CANCER
     Dosage: 360 MG, Q3WK
     Route: 041
     Dates: start: 20120608, end: 20120713
  2. IRINOTECAN HYDROCHLORIDE [Suspect]
     Indication: COLORECTAL CANCER
     Dosage: UNK
     Route: 041
     Dates: start: 20120106
  3. IRINOTECAN HYDROCHLORIDE [Suspect]
     Dosage: 240 MG, Q3WK
     Route: 041
     Dates: start: 20120608, end: 20120713
  4. FLUOROURACIL [Concomitant]
     Indication: COLORECTAL CANCER
     Dosage: UNK
     Route: 042
     Dates: start: 20120106
  5. CALCIUM LEVOFOLINATE [Concomitant]
     Indication: COLORECTAL CANCER
     Dosage: UNK
     Route: 041
     Dates: start: 20120106
  6. GRANISETRON [Concomitant]
     Indication: PROPHYLAXIS OF NAUSEA AND VOMITING
     Dosage: 6.6 MG, Q3WK
     Route: 041
     Dates: start: 20120608, end: 20120713
  7. MINOMYCIN [Concomitant]
     Dosage: UNK
     Route: 048
  8. TRAMAL [Concomitant]
     Dosage: UNK
     Route: 048
  9. DEXART [Concomitant]
     Dosage: UNK
     Route: 042

REACTIONS (1)
  - Hepatic steatosis [Recovering/Resolving]
